FAERS Safety Report 9559698 (Version 1)
Quarter: 2013Q3

REPORT INFORMATION
  Report Type: Spontaneous
  Country: US (occurrence: None)
  Receive Date: 20130924
  Receipt Date: 20130924
  Transmission Date: 20140515
  Serious: Yes (Other)
  Sender: FDA-Public Use
  Company Number: 2013US00607

PATIENT
  Sex: Male

DRUGS (5)
  1. GEMCITABINE [Suspect]
     Indication: PANCREATIC CARCINOMA STAGE II
  2. ALLOPURINOL [Concomitant]
  3. FLUROURACIL [Concomitant]
  4. COLCHICINE [Concomitant]
  5. RADIATION [Concomitant]

REACTIONS (1)
  - Gouty arthritis [None]
